FAERS Safety Report 9167964 (Version 2)
Quarter: 2013Q2

REPORT INFORMATION
  Report Type: Spontaneous
  Country: US (occurrence: US)
  Receive Date: 20130318
  Receipt Date: 20130412
  Transmission Date: 20140414
  Serious: No
  Sender: FDA-Public Use
  Company Number: US-BAYER-2013-023663

PATIENT
  Sex: Female

DRUGS (6)
  1. AVELOX [Suspect]
  2. BENZYLPENICILLIN [Suspect]
  3. ERYTHROMYCIN [Suspect]
  4. SULFONAMIDE [Suspect]
  5. CEFTIN [Suspect]
  6. KEFLEX [Suspect]

REACTIONS (1)
  - Drug hypersensitivity [Unknown]
